FAERS Safety Report 12842752 (Version 1)
Quarter: 2016Q4

REPORT INFORMATION
  Report Type: Spontaneous
  Country: US (occurrence: US)
  Receive Date: 20161013
  Receipt Date: 20161013
  Transmission Date: 20170207
  Serious: No
  Sender: FDA-Public Use
  Company Number: US-PFIZER INC-2016477018

PATIENT

DRUGS (2)
  1. PREMARIN [Suspect]
     Active Substance: ESTROGENS, CONJUGATED
     Dosage: 0.3 MG, UNK
     Dates: start: 2006
  2. MENEST [Concomitant]
     Active Substance: ESTROGENS, ESTERIFIED
     Dosage: UNK

REACTIONS (1)
  - Malaise [Unknown]
